FAERS Safety Report 10400435 (Version 1)
Quarter: 2014Q3

REPORT INFORMATION
  Report Type: Spontaneous
  Country: US (occurrence: US)
  Receive Date: 20140821
  Receipt Date: 20140821
  Transmission Date: 20150326
  Serious: No
  Sender: FDA-Public Use
  Company Number: US-ASTRAZENECA-2013SE84855

PATIENT
  Age: 54 Year
  Sex: Male
  Weight: 85.7 kg

DRUGS (2)
  1. LISINOPRIL. [Suspect]
     Active Substance: LISINOPRIL
     Indication: HYPERTENSION
     Route: 048
     Dates: start: 2010
  2. SYMBICORT [Suspect]
     Active Substance: BUDESONIDE\FORMOTEROL FUMARATE DIHYDRATE
     Indication: ASTHMA
     Dosage: 160/4.5, 2 PUFFS DAILY
     Route: 055
     Dates: start: 20131112

REACTIONS (4)
  - Flatulence [Unknown]
  - Off label use [Unknown]
  - Asthma [Unknown]
  - Muscle spasms [Unknown]
